FAERS Safety Report 10249756 (Version 1)
Quarter: 2014Q2

REPORT INFORMATION
  Report Type: Spontaneous
  Country: US (occurrence: US)
  Receive Date: 20140620
  Receipt Date: 20140620
  Transmission Date: 20141212
  Serious: Yes (Other)
  Sender: FDA-Public Use
  Company Number: US-SA-2014SA076958

PATIENT
  Age: 34 Year
  Sex: Female

DRUGS (6)
  1. AUBAGIO [Suspect]
     Indication: MULTIPLE SCLEROSIS
     Route: 065
     Dates: start: 20130208
  2. QUESTRAN [Concomitant]
     Dosage: 4 G PACKET/TAKE 2 PACK
     Route: 048
  3. HYDROCORTISONE [Concomitant]
     Route: 048
  4. HYDROCHLOROTHIAZIDE/METOPROLOL [Concomitant]
     Route: 048
  5. NECON [Concomitant]
     Route: 048
  6. ZOLOFT [Concomitant]
     Route: 048

REACTIONS (2)
  - Abortion spontaneous [Unknown]
  - Exposure during pregnancy [Unknown]
